FAERS Safety Report 5598954-3 (Version None)
Quarter: 2008Q1

REPORT INFORMATION
  Report Type: 
  Country: None (occurrence: None)
  Receive Date: 20080122
  Receipt Date: 20080115
  Transmission Date: 20080703
  Serious: Yes (Hospitalization, Other)
  Sender: FDA-Public Use
  Company Number: US-GENENTECH-254393

PATIENT
  Sex: Female
  Weight: 21.4 kg

DRUGS (1)
  1. SOMATROPIN [Suspect]
     Indication: TURNER'S SYNDROME
     Dosage: 1.4 MG, 6/WEEK
     Route: 058
     Dates: start: 20041118

REACTIONS (1)
  - ARTHRITIS BACTERIAL [None]
